FAERS Safety Report 9405883 (Version 1)
Quarter: 2013Q3

REPORT INFORMATION
  Report Type: Spontaneous
  Country: BE (occurrence: BE)
  Receive Date: 20130717
  Receipt Date: 20130717
  Transmission Date: 20140515
  Serious: Yes (Hospitalization)
  Sender: FDA-Public Use
  Company Number: BE-B.I. PHARMACEUTICALS,INC./RIDGEFIELD-2013-BL-00330BL

PATIENT
  Age: 76 Year
  Sex: Male
  Weight: 92 kg

DRUGS (10)
  1. PRADAXA [Suspect]
     Indication: ATRIAL FIBRILLATION
     Dosage: 220 MG
     Dates: start: 201209
  2. PRADAXA [Suspect]
     Dosage: 220 MG
     Dates: end: 20130701
  3. CORUNO [Concomitant]
     Dosage: 16 NR
  4. ZOLPIDEM [Concomitant]
     Dosage: 10 NR
  5. ALDACTONE [Concomitant]
     Dosage: 25 NR
  6. KREDEX [Concomitant]
     Dosage: 12.5 NR
  7. SIMVASTATINE [Concomitant]
     Dosage: 20 NR
  8. TRITACE [Concomitant]
     Dosage: 10 NR
  9. BELSAR [Concomitant]
     Dosage: 20 NR
  10. LASIX [Concomitant]
     Dosage: 40 NR

REACTIONS (6)
  - Decreased appetite [Recovered/Resolved with Sequelae]
  - Nausea [Recovered/Resolved with Sequelae]
  - Vomiting [Recovered/Resolved with Sequelae]
  - Decreased appetite [Not Recovered/Not Resolved]
  - Nausea [Not Recovered/Not Resolved]
  - Vomiting [Not Recovered/Not Resolved]
